FAERS Safety Report 24739572 (Version 1)
Quarter: 2024Q4

REPORT INFORMATION
  Report Type: Spontaneous
  Country: US (occurrence: US)
  Receive Date: 20241216
  Receipt Date: 20241216
  Transmission Date: 20250114
  Serious: No
  Sender: SANOFI AVENTIS
  Company Number: US-SA-2024SA369682

PATIENT
  Age: 52 Year
  Sex: Female
  Weight: 71.36 kg

DRUGS (2)
  1. DUPIXENT [Suspect]
     Active Substance: DUPILUMAB
     Dosage: 300.000MG QOW
     Route: 058
  2. PROGESTERONE [Concomitant]
     Active Substance: PROGESTERONE
     Dosage: 100 MG

REACTIONS (2)
  - Alopecia [Not Recovered/Not Resolved]
  - Blood immunoglobulin E decreased [Not Recovered/Not Resolved]

NARRATIVE: CASE EVENT DATE: 20241101
